FAERS Safety Report 5497854-7 (Version None)
Quarter: 2007Q4

REPORT INFORMATION
  Report Type: 
  Country: None (occurrence: None)
  Receive Date: 20071025
  Receipt Date: 20070309
  Transmission Date: 20080405
  Serious: Yes (Other)
  Sender: FDA-Public Use
  Company Number: A0642594A

PATIENT
  Age: 73 Year
  Sex: Male

DRUGS (8)
  1. ADVAIR DISKUS 100/50 [Suspect]
     Indication: ASTHMA
     Dosage: 250MCG TWICE PER DAY
     Route: 055
  2. LOTREL [Concomitant]
  3. HYDROCHLOROTHIAZIDE [Concomitant]
  4. ZETIA [Concomitant]
  5. ALBUTEROL [Concomitant]
  6. NEXIUM [Concomitant]
  7. METAGLIP [Concomitant]
  8. VITAMIN CAP [Concomitant]

REACTIONS (1)
  - PNEUMONIA [None]
